FAERS Safety Report 16524883 (Version 1)
Quarter: 2019Q3

REPORT INFORMATION
  Report Type: Spontaneous
  Country: US (occurrence: US)
  Receive Date: 20190522
  Receipt Date: 20190522
  Transmission Date: 20191004
  Serious: Yes (Other)
  Sender: FDA-Public Use
  Company Number: None

PATIENT
  Age: 59 Year
  Sex: Female
  Weight: 93.8 kg

DRUGS (1)
  1. JARDIANCE [Suspect]
     Active Substance: EMPAGLIFLOZIN
     Indication: GLYCOSYLATED HAEMOGLOBIN INCREASED
     Dosage: 10MG 1 TAB MORN BY MOUTH?20 DAYS
     Route: 048
     Dates: start: 20190207

REACTIONS (4)
  - Rash [None]
  - Haemorrhage [None]
  - Scratch [None]
  - Drug interaction [None]
